FAERS Safety Report 13615418 (Version 13)
Quarter: 2022Q1

REPORT INFORMATION
  Report Type: Spontaneous
  Country: US (occurrence: US)
  Receive Date: 20170606
  Receipt Date: 20220114
  Transmission Date: 20220423
  Serious: No
  Sender: FDA-Public Use
  Company Number: US-PFIZER INC-2016305780

PATIENT
  Age: 38 Year
  Sex: Female
  Weight: 113 kg

DRUGS (10)
  1. LYRICA [Suspect]
     Active Substance: PREGABALIN
     Indication: Focal dyscognitive seizures
     Dosage: UNK, 4X/DAY (200MG THREE TIMES A DAY AND 100MG AT NIGHT)
     Route: 048
     Dates: start: 201003
  2. LYRICA [Suspect]
     Active Substance: PREGABALIN
     Indication: Epilepsy
     Dosage: UNK, 4X/DAY (200MG THREE TIMES A DAY AND 100MG AT NIGHT)
     Route: 048
     Dates: start: 201003
  3. LYRICA [Suspect]
     Active Substance: PREGABALIN
     Indication: Seizure
     Dosage: UNK, 4X/DAY (200 MG THREE TIMES A DAY AND 100 MG AT NIGHT)
     Route: 048
     Dates: start: 201705, end: 20170530
  4. LYRICA [Suspect]
     Active Substance: PREGABALIN
     Indication: Pain
     Dosage: 200 MG, 3X/DAY (TAKE 1 CAPSULE 3 TIMES DAILY )
     Route: 048
  5. LYRICA [Suspect]
     Active Substance: PREGABALIN
     Dosage: 300 MG, 1X/DAY (100 MG CAPSULE IN EVENING WITH 200 MG CAPSULE FOR TOTAL DOSE OF 300 MG)
     Route: 048
  6. LYRICA [Suspect]
     Active Substance: PREGABALIN
     Dosage: 700 MG, DAILY (200 MG AT 9AM, 3PM, 9PM; AND 100 MG AT 9PM)
  7. VIMPAT [Concomitant]
     Active Substance: LACOSAMIDE
     Dosage: UNK
  8. PRIMIDONE [Concomitant]
     Active Substance: PRIMIDONE
     Dosage: UNK
  9. TOPIRAMATE [Concomitant]
     Active Substance: TOPIRAMATE
     Dosage: UNK
  10. SERTRALINE [Concomitant]
     Active Substance: SERTRALINE HYDROCHLORIDE
     Dosage: UNK

REACTIONS (5)
  - Feeling abnormal [Recovered/Resolved]
  - Amnesia [Unknown]
  - Dizziness [Recovered/Resolved]
  - Impaired work ability [Unknown]
  - Prescribed overdose [Unknown]

NARRATIVE: CASE EVENT DATE: 20100301
